FAERS Safety Report 11897162 (Version 3)
Quarter: 2018Q4

REPORT INFORMATION
  Report Type: Spontaneous
  Country: GB (occurrence: GB)
  Receive Date: 20160107
  Receipt Date: 20181112
  Transmission Date: 20190204
  Serious: Yes (Hospitalization, Other)
  Sender: FDA-Public Use
  Company Number: GB-ROCHE-1689225

PATIENT
  Age: 74 Year
  Sex: Male

DRUGS (6)
  1. ATRIPLA [Interacting]
     Active Substance: EFAVIRENZ\EMTRICITABINE\TENOFOVIR DISOPROXIL FUMARATE
     Indication: HIV INFECTION
     Route: 065
  2. RIBAVIRIN. [Suspect]
     Active Substance: RIBAVIRIN
     Indication: HEPATITIS C
     Dosage: DOSE UNKNOWN
     Route: 065
     Dates: start: 2009
  3. RIBAVIRIN. [Interacting]
     Active Substance: RIBAVIRIN
     Route: 065
  4. PEG-INTERFERON ALFA 2A [Suspect]
     Active Substance: PEGINTERFERON ALFA-2A
     Indication: HEPATITIS C
     Route: 065
     Dates: start: 2009
  5. LEDIPASVIR [Interacting]
     Active Substance: LEDIPASVIR
     Indication: HEPATITIS C
     Route: 065
     Dates: start: 201407
  6. SOFOSBUVIR [Interacting]
     Active Substance: SOFOSBUVIR
     Indication: HEPATITIS C
     Route: 065
     Dates: start: 201407

REACTIONS (4)
  - Drug-induced liver injury [Not Recovered/Not Resolved]
  - Ascites [Unknown]
  - Drug interaction [Unknown]
  - Hepatic failure [Unknown]

NARRATIVE: CASE EVENT DATE: 2009
